FAERS Safety Report 22383438 (Version 1)
Quarter: 2023Q2

REPORT INFORMATION
  Report Type: Report from Study
  Country: HN (occurrence: HN)
  Receive Date: 20230530
  Receipt Date: 20230530
  Transmission Date: 20230721
  Serious: Yes (Disabling)
  Sender: FDA-Public Use
  Company Number: HN-002147023-NVSC2023HN120375

PATIENT
  Sex: Female

DRUGS (3)
  1. SACUBITRIL\VALSARTAN [Suspect]
     Active Substance: SACUBITRIL\VALSARTAN
     Indication: Cardiac failure
     Dosage: 50 MG, QD (1 X 50 MG), (DISCONTINUED)
     Route: 048
     Dates: start: 2022, end: 202211
  2. SACUBITRIL\VALSARTAN [Suspect]
     Active Substance: SACUBITRIL\VALSARTAN
     Dosage: 100 MG, QD
     Route: 048
     Dates: start: 202211
  3. DIOVAN [Suspect]
     Active Substance: VALSARTAN
     Indication: Hypertension
     Dosage: 320 MG, QD
     Route: 048

REACTIONS (4)
  - Hemiplegia [Not Recovered/Not Resolved]
  - Underdose [Unknown]
  - Inappropriate schedule of product administration [Unknown]
  - Contraindicated product administered [Unknown]

NARRATIVE: CASE EVENT DATE: 20220101
